FAERS Safety Report 25190694 (Version 1)
Quarter: 2025Q2

REPORT INFORMATION
  Report Type: Spontaneous
  Country: US (occurrence: US)
  Receive Date: 20250411
  Receipt Date: 20250411
  Transmission Date: 20250717
  Serious: Yes (Other)
  Sender: AMGEN
  Company Number: US-AMGEN-USASP2025066363

PATIENT
  Age: 58 Year
  Sex: Female

DRUGS (4)
  1. TRASTUZUMAB [Suspect]
     Active Substance: TRASTUZUMAB
     Indication: Pneumonitis
     Route: 065
  2. PREDNISONE [Suspect]
     Active Substance: PREDNISONE
     Indication: Pneumonitis
     Route: 048
  3. ANASTROZOLE [Concomitant]
     Active Substance: ANASTROZOLE
     Indication: HER2 positive breast cancer
  4. METHYLPREDNISOLONE [Concomitant]
     Active Substance: METHYLPREDNISOLONE

REACTIONS (2)
  - Pneumonitis [Unknown]
  - Restrictive pulmonary disease [Unknown]
